FAERS Safety Report 15298527 (Version 1)
Quarter: 2018Q3

REPORT INFORMATION
  Report Type: Spontaneous
  Country: FR (occurrence: FR)
  Receive Date: 20180820
  Receipt Date: 20180820
  Transmission Date: 20181010
  Serious: Yes (Hospitalization)
  Sender: FDA-Public Use
  Company Number: FR-PURDUE PHARMA-GBR-2017-0045788

PATIENT
  Age: 71 Year
  Sex: Female

DRUGS (22)
  1. BACTRIM [Suspect]
     Active Substance: SULFAMETHOXAZOLE\TRIMETHOPRIM
     Indication: DEVICE RELATED INFECTION
     Dosage: 4 DF, DAILY [800/160 2 TABLETS MORNING AND EVENING]
     Route: 048
     Dates: start: 20170405, end: 20170428
  2. FOLIC ACID. [Concomitant]
     Active Substance: FOLIC ACID
     Dosage: 1 TABLET, AM
  3. BEVACIZUMAB. [Concomitant]
     Active Substance: BEVACIZUMAB
     Dosage: UNK
     Dates: start: 20170113, end: 20170113
  4. ZOPHREN                            /00955301/ [Concomitant]
     Active Substance: ONDANSETRON
     Dosage: 1 TABLET, Q8H
     Dates: end: 20170507
  5. FUCIDINE                           /00065701/ [Concomitant]
     Active Substance: FUSIDIC ACID
     Dosage: 250 MG, [TWO TABLETS MORNING, AT NOON, EVENING]
  6. PANTOPRAZOLE [Concomitant]
     Active Substance: PANTOPRAZOLE
     Dosage: 1 TABLET, NOCTE
  7. BEVACIZUMAB. [Concomitant]
     Active Substance: BEVACIZUMAB
     Dosage: UNK
     Dates: start: 20170127, end: 20170127
  8. TARGOCID [Concomitant]
     Active Substance: TEICOPLANIN
     Dosage: 600 MG, Q12H
  9. LEDERFOLINE [Concomitant]
     Active Substance: LEUCOVORIN CALCIUM
     Dosage: 25 MG, AM
  10. TOPALGIC                           /00599202/ [Concomitant]
     Active Substance: TRAMADOL HYDROCHLORIDE
     Dosage: 1 TABLET, AM
  11. ORAMORPH [Concomitant]
     Active Substance: MORPHINE SULFATE
     Dosage: 5 MG, SINGLE
     Dates: start: 20170428
  12. SMECTA [Concomitant]
     Active Substance: MONTMORILLONITE
     Dosage: 1 PACKET, TID [MORNING, AT NOON, EVENING.]
  13. OXYNORM [Concomitant]
     Active Substance: OXYCODONE HYDROCHLORIDE
     Dosage: 1 TABLET, Q6H [ONE INTAKE OF 10MG ON 25?APR?2017]
  14. LYRICA [Concomitant]
     Active Substance: PREGABALIN
     Dosage: 1 CAPSL, BID [ONE CAPSULE MORNING AND EVENING]
  15. PERINDOPRIL [Concomitant]
     Active Substance: PERINDOPRIL
     Dosage: 2 TABLET, BID [2 TABLETS MORNING AND EVENING]
  16. STILNOX [Concomitant]
     Active Substance: ZOLPIDEM TARTRATE
     Dosage: 1 TABLET, NOCTE
  17. OXYNORMORO [Suspect]
     Active Substance: OXYCODONE HYDROCHLORIDE
     Indication: PAIN
     Dosage: 1 DF, Q4H [10MG STRENGTH]
     Route: 048
     Dates: end: 20170425
  18. EXACYL [Concomitant]
     Active Substance: TRANEXAMIC ACID
     Dosage: ONE TABLET IN THE MORNING, TWO TABLETS IN THE EVENING
  19. KAYEXALATE [Concomitant]
     Active Substance: SODIUM POLYSTYRENE SULFONATE
     Dosage: ONE MORNING AND EVENING
  20. TARDYFERON [Concomitant]
     Active Substance: FERROUS SULFATE
     Dosage: 1 TABLET, AM
  21. DAFALGAN [Concomitant]
     Active Substance: ACETAMINOPHEN
     Dosage: 2 TABLET, Q6H
  22. BEVACIZUMAB. [Concomitant]
     Active Substance: BEVACIZUMAB
     Dosage: UNK
     Dates: start: 20170210, end: 20170210

REACTIONS (3)
  - Eosinophilia [Recovered/Resolved]
  - Rash [Recovered/Resolved]
  - Cholestasis [Recovering/Resolving]

NARRATIVE: CASE EVENT DATE: 20170425
